FAERS Safety Report 19862723 (Version 2)
Quarter: 2021Q3

REPORT INFORMATION
  Report Type: Spontaneous
  Country: CA (occurrence: CA)
  Receive Date: 20210921
  Receipt Date: 20210928
  Transmission Date: 20211014
  Serious: Yes (Other)
  Sender: FDA-Public Use
  Company Number: CA-UNITED THERAPEUTICS-UNT-2021-017655

PATIENT
  Age: 46 Year
  Sex: Male

DRUGS (2)
  1. REMODULIN [Suspect]
     Active Substance: TREPROSTINIL
     Indication: PULMONARY ARTERIAL HYPERTENSION
     Dosage: UNK, CONTINUING
     Route: 058
     Dates: start: 20210902
  2. REMODULIN [Suspect]
     Active Substance: TREPROSTINIL
     Dosage: 0.020 ?G/KG, CONTINUING
     Route: 058
     Dates: start: 202109, end: 20210915

REACTIONS (6)
  - Arthralgia [Not Recovered/Not Resolved]
  - Urinary retention [Not Recovered/Not Resolved]
  - Infusion site induration [Unknown]
  - Pain [Unknown]
  - Infusion site pain [Unknown]
  - Pain in jaw [Not Recovered/Not Resolved]

NARRATIVE: CASE EVENT DATE: 202109
